FAERS Safety Report 8419460-4 (Version None)
Quarter: 2012Q2

REPORT INFORMATION
  Report Type: 
  Country: None (occurrence: None)
  Receive Date: 20120607
  Receipt Date: 20120601
  Transmission Date: 20120825
  Serious: Yes (Other)
  Sender: FDA-Public Use
  Company Number: JP-GLAXOSMITHKLINE-B0805742A

PATIENT
  Age: 78 Year
  Sex: Male

DRUGS (5)
  1. PRAVASTATIN SODIUM [Concomitant]
     Route: 048
  2. URIEF [Concomitant]
     Route: 048
  3. DUTASTERIDE [Suspect]
     Indication: BENIGN PROSTATIC HYPERPLASIA
     Dosage: .5MG PER DAY
     Route: 048
     Dates: start: 20110617, end: 20120401
  4. ADALAT [Concomitant]
     Route: 048
  5. LOSARTAN POTASSIUM AND HYDROCHLOROTHIAZIDE [Concomitant]
     Route: 048

REACTIONS (2)
  - GYNAECOMASTIA [None]
  - BREAST CANCER [None]
